FAERS Safety Report 16430973 (Version 1)
Quarter: 2019Q2

REPORT INFORMATION
  Report Type: Spontaneous
  Country: US (occurrence: US)
  Receive Date: 20190614
  Receipt Date: 20190614
  Transmission Date: 20190711
  Serious: No
  Sender: FDA-Public Use
  Company Number: US-EISAI MEDICAL RESEARCH-EC-2019-057452

PATIENT
  Age: 17 Year
  Sex: Female

DRUGS (10)
  1. SODIUM [Concomitant]
     Active Substance: SODIUM
     Indication: HYPONATRAEMIA
     Route: 048
  2. DEPAKOTE [Concomitant]
     Active Substance: DIVALPROEX SODIUM
     Indication: SEIZURE
     Dosage: DOSE AND FREQUENCY UNKNOWN
     Route: 048
  3. EPIDIOLEX CBD OIL [Concomitant]
     Indication: SEIZURE
     Dosage: 4 ML AM/6 ML PM
     Route: 048
  4. FELBAMATE. [Concomitant]
     Active Substance: FELBAMATE
     Dosage: WEANED OFF (DOSING UNKNOWN)
     Route: 048
     Dates: start: 201905, end: 201905
  5. BELVIQ [Suspect]
     Active Substance: LORCASERIN HYDROCHLORIDE
     Dosage: 5 MG AM/2.5 MG PM
     Route: 048
     Dates: start: 201905
  6. FELBAMATE. [Concomitant]
     Active Substance: FELBAMATE
     Indication: SEIZURE
     Dosage: DOSE AND FREQUENCY UNKNOWN
     Route: 048
     Dates: end: 201905
  7. BELVIQ [Suspect]
     Active Substance: LORCASERIN HYDROCHLORIDE
     Indication: SEIZURE
     Route: 048
     Dates: start: 201905, end: 201905
  8. BANZEL [Concomitant]
     Active Substance: RUFINAMIDE
     Indication: LENNOX-GASTAUT SYNDROME
     Dosage: 10 ML
     Route: 048
  9. ONFI [Concomitant]
     Active Substance: CLOBAZAM
     Indication: SEIZURE
     Dosage: DOSE AND FREQUENCY UNKNOWN
     Route: 048
  10. LASIX [Concomitant]
     Active Substance: FUROSEMIDE
     Indication: PRODUCT USED FOR UNKNOWN INDICATION
     Dosage: 40 MG AM/20 MG PM
     Route: 048

REACTIONS (6)
  - Product used for unknown indication [Unknown]
  - Lethargy [Unknown]
  - Aspartate aminotransferase increased [Unknown]
  - Alanine aminotransferase increased [Unknown]
  - Wrong technique in product usage process [Unknown]
  - Drooling [Unknown]

NARRATIVE: CASE EVENT DATE: 201905
